FAERS Safety Report 15101379 (Version 1)
Quarter: 2018Q2

REPORT INFORMATION
  Report Type: Spontaneous
  Country: US (occurrence: US)
  Receive Date: 20180611
  Receipt Date: 20180611
  Transmission Date: 20180711
  Serious: Yes (Hospitalization)
  Sender: FDA-Public Use
  Company Number: None

PATIENT
  Sex: Female

DRUGS (17)
  1. TAFINLAR [Suspect]
     Active Substance: DABRAFENIB MESYLATE
     Indication: BRONCHIAL CARCINOMA
     Route: 048
     Dates: start: 20180202
  2. XARELTO [Concomitant]
     Active Substance: RIVAROXABAN
  3. MORPHINE [Concomitant]
     Active Substance: MORPHINE
  4. ACYCLOVIR. [Concomitant]
     Active Substance: ACYCLOVIR
  5. LORAZEPAM. [Concomitant]
     Active Substance: LORAZEPAM
  6. MEPROBAMATE. [Concomitant]
     Active Substance: MEPROBAMATE
  7. OXYCODONE AND ACETAMINOPHEN [Concomitant]
     Active Substance: ACETAMINOPHEN\OXYCODONE HYDROCHLORIDE
  8. CYCLOBENZAPRINE. [Concomitant]
     Active Substance: CYCLOBENZAPRINE
  9. ALPRAZOLAM. [Concomitant]
     Active Substance: ALPRAZOLAM
  10. PANTOPRAZOLE [Concomitant]
     Active Substance: PANTOPRAZOLE
  11. AMLODIPINE [Concomitant]
     Active Substance: AMLODIPINE BESYLATE
  12. ONDANSETRON [Concomitant]
     Active Substance: ONDANSETRON
  13. OLM MED/HCTZ [Concomitant]
  14. MEKINIST [Suspect]
     Active Substance: TRAMETINIB DIMETHYL SULFOXIDE
     Indication: BRONCHIAL CARCINOMA
     Route: 048
     Dates: start: 20180202
  15. NITROFURANTOIN. [Concomitant]
     Active Substance: NITROFURANTOIN
  16. CARAFATE [Concomitant]
     Active Substance: SUCRALFATE
  17. AMOXICILLIN. [Concomitant]
     Active Substance: AMOXICILLIN

REACTIONS (1)
  - Hospitalisation [None]
